FAERS Safety Report 20674523 (Version 1)
Quarter: 2022Q2

REPORT INFORMATION
  Report Type: Spontaneous
  Country: US (occurrence: None)
  Receive Date: 20220404
  Receipt Date: 20220404
  Transmission Date: 20220721
  Serious: No
  Sender: FDA-Public Use
  Company Number: None

PATIENT
  Age: 74 Year
  Sex: Female
  Weight: 67.59 kg

DRUGS (9)
  1. IBANDRONATE SODIUM [Suspect]
     Active Substance: IBANDRONATE SODIUM
     Indication: Osteoporosis
     Dosage: OTHER QUANTITY : 1 PILL;?FREQUENCY : MONTHLY;?
     Route: 048
     Dates: start: 20220205, end: 20220205
  2. Benazeprol [Concomitant]
  3. Pantroprazole [Concomitant]
  4. TRETINOIN [Concomitant]
     Active Substance: TRETINOIN
  5. VITAMIN B12 [Concomitant]
     Active Substance: CYANOCOBALAMIN
  6. VITAMIN D NOS [Concomitant]
     Active Substance: VITAMIN D NOS
  7. CRANBERRY [Concomitant]
     Active Substance: CRANBERRY
  8. Presser Vision [Concomitant]
  9. TYLENOL [Concomitant]
     Active Substance: ACETAMINOPHEN

REACTIONS (6)
  - Influenza like illness [None]
  - Chills [None]
  - Asthenia [None]
  - Bone pain [None]
  - Musculoskeletal chest pain [None]
  - Back pain [None]

NARRATIVE: CASE EVENT DATE: 20220205
